FAERS Safety Report 4429443-7 (Version None)
Quarter: 2004Q3

REPORT INFORMATION
  Report Type: 
  Country: None (occurrence: None)
  Receive Date: 20040816
  Receipt Date: 20040730
  Transmission Date: 20050211
  Serious: Yes (Hospitalization)
  Sender: FDA-Public Use
  Company Number: 201622

PATIENT
  Age: 51 Year
  Sex: Female
  Weight: 63.05 kg

DRUGS (4)
  1. AVONEX [Suspect]
     Indication: MULTIPLE SCLEROSIS
     Dosage: 30 MCG QW IM
     Route: 030
     Dates: start: 19990101, end: 20040501
  2. AVONEX [Suspect]
     Indication: MULTIPLE SCLEROSIS
     Dosage: 30 MCG QW IM
     Route: 030
     Dates: start: 20040501
  3. IMATREX ^GLAXO^ [Concomitant]
  4. PREMARIN [Concomitant]

REACTIONS (8)
  - CHOKING [None]
  - COMA [None]
  - DYSPHAGIA [None]
  - IATROGENIC INJURY [None]
  - INFLUENZA LIKE ILLNESS [None]
  - OBSTRUCTIVE AIRWAYS DISORDER [None]
  - RIB FRACTURE [None]
  - WEIGHT DECREASED [None]
